FAERS Safety Report 6997663-3 (Version None)
Quarter: 2010Q3

REPORT INFORMATION
  Report Type: 
  Country: None (occurrence: None)
  Receive Date: 20100918
  Receipt Date: 20091109
  Transmission Date: 20110219
  Serious: No
  Sender: FDA-Public Use
  Company Number: US-WYE-H12147509

PATIENT
  Sex: Male

DRUGS (6)
  1. PRISTIQ [Suspect]
     Indication: DEPRESSION
     Route: 048
     Dates: start: 20091001, end: 20091101
  2. PRISTIQ [Suspect]
     Indication: ANXIETY
  3. KLONOPIN [Concomitant]
  4. AMBIEN [Concomitant]
  5. LIPITOR [Concomitant]
  6. PROTONIX [Concomitant]

REACTIONS (3)
  - DRUG INEFFECTIVE [None]
  - FEELING ABNORMAL [None]
  - SUPRAVENTRICULAR EXTRASYSTOLES [None]
